FAERS Safety Report 7517465-9 (Version None)
Quarter: 2011Q2

REPORT INFORMATION
  Report Type: 
  Country: None (occurrence: None)
  Receive Date: 20110601
  Receipt Date: 20110520
  Transmission Date: 20111010
  Serious: Yes (Other)
  Sender: FDA-Public Use
  Company Number: US-PFIZER INC-2011075459

PATIENT
  Sex: Male
  Weight: 59 kg

DRUGS (2)
  1. COMBIGAN [Concomitant]
     Indication: GLAUCOMA
     Dosage: UNK
  2. XALATAN [Suspect]
     Indication: GLAUCOMA
     Dosage: 1 GTT, IN EACH EYE
     Route: 047

REACTIONS (1)
  - EYE INFLAMMATION [None]
